FAERS Safety Report 16193411 (Version 3)
Quarter: 2019Q2

REPORT INFORMATION
  Report Type: Spontaneous
  Country: US (occurrence: US)
  Receive Date: 20190413
  Receipt Date: 20190604
  Transmission Date: 20190711
  Serious: No
  Sender: FDA-Public Use
  Company Number: US-TEVA-2019-US-1028142

PATIENT
  Sex: Male

DRUGS (2)
  1. WARFARIN SODIUM TABLET TEVA [Suspect]
     Active Substance: WARFARIN SODIUM
     Indication: INTERNATIONAL NORMALISED RATIO FLUCTUATION
  2. WARFARIN SODIUM TABLET TEVA [Suspect]
     Active Substance: WARFARIN SODIUM
     Indication: DEEP VEIN THROMBOSIS
     Dosage: TAKES HALF TAB DAILY (DAILY DOSE IS 2.5 MG, OR ? OF A 5MG TABLET)
     Route: 065
     Dates: start: 20190228, end: 20190314

REACTIONS (4)
  - Drug ineffective [Unknown]
  - Adverse event [Unknown]
  - Product substitution issue [Unknown]
  - Anxiety [Unknown]
